FAERS Safety Report 21449677 (Version 1)
Quarter: 2022Q4

REPORT INFORMATION
  Report Type: Spontaneous
  Country: FR (occurrence: FR)
  Receive Date: 20221013
  Receipt Date: 20221013
  Transmission Date: 20230112
  Serious: Yes (Hospitalization, Other)
  Sender: FDA-Public Use
  Company Number: None

PATIENT
  Age: 71 Year
  Sex: Female
  Weight: 100 kg

DRUGS (2)
  1. TRAMADOL HYDROCHLORIDE [Suspect]
     Active Substance: TRAMADOL HYDROCHLORIDE
     Indication: Musculoskeletal pain
     Dates: end: 20190925
  2. ISONIAZID\RIFAMPIN [Suspect]
     Active Substance: ISONIAZID\RIFAMPIN
     Indication: Lymph node tuberculosis
     Dosage: 3 DF, QD; 3 TABLETS PER DAY FOR 4 MONTHS (PRESCRIPTION DATED 27/08/2019)
     Route: 048
     Dates: start: 20190917, end: 20190925

REACTIONS (1)
  - Seizure [Recovered/Resolved]
